FAERS Safety Report 7560421-5 (Version None)
Quarter: 2011Q2

REPORT INFORMATION
  Report Type: 
  Country: None (occurrence: None)
  Receive Date: 20110621
  Receipt Date: 20110615
  Transmission Date: 20111010
  Serious: Yes (Other)
  Sender: FDA-Public Use
  Company Number: CA-ABBOTT-11P-028-0704710-00

PATIENT
  Age: 45 Year
  Sex: Male
  Weight: 96.248 kg

DRUGS (8)
  1. KALETRA [Suspect]
     Indication: HIV INFECTION
  2. FENTANYL-100 [Interacting]
     Indication: PRODUCT USED FOR UNKNOWN INDICATION
     Route: 062
  3. HYDROMORPHONE HCL [Concomitant]
     Indication: PRODUCT USED FOR UNKNOWN INDICATION
  4. FENTANYL-100 [Interacting]
  5. TRUVADA [Concomitant]
     Indication: HIV INFECTION
  6. ADVAIR DISKUS 100/50 [Concomitant]
     Indication: PRODUCT USED FOR UNKNOWN INDICATION
     Route: 065
  7. FLEXERIL [Concomitant]
     Indication: PRODUCT USED FOR UNKNOWN INDICATION
  8. ALBUTEROL [Concomitant]
     Indication: PRODUCT USED FOR UNKNOWN INDICATION

REACTIONS (3)
  - CHEST DISCOMFORT [None]
  - RESPIRATORY DISORDER [None]
  - DRUG INTERACTION [None]
